FAERS Safety Report 23473070 (Version 1)
Quarter: 2024Q1

REPORT INFORMATION
  Report Type: Spontaneous
  Country: NL (occurrence: NL)
  Receive Date: 20240203
  Receipt Date: 20240203
  Transmission Date: 20240410
  Serious: Yes (Other)
  Sender: FDA-Public Use
  Company Number: None

PATIENT
  Age: 52 Year
  Sex: Male
  Weight: 78 kg

DRUGS (3)
  1. METFORMIN [Suspect]
     Active Substance: METFORMIN HYDROCHLORIDE
     Indication: Diabetes mellitus
     Dosage: 1 PIECE ONCE A DAY,, 500MG / BRAND NAME NOT SPECIFIED
     Route: 065
     Dates: start: 20230913
  2. OMEPRAZOL CAPSULE MSR [Concomitant]
     Indication: Product used for unknown indication
     Dosage: GASTRO-RESISTANT CAPSULE, 40 MG (MILLIGRAM), 40MG / BRAND NAME NOT SPECIFIED
     Route: 065
  3. ROSUVASTATINE TABLET [Concomitant]
     Indication: Product used for unknown indication
     Dosage: TABLET, 20 MG (MILLIGRAM), 20MG / BRAND NAME NOT SPECIFIED
     Route: 065

REACTIONS (1)
  - Erectile dysfunction [Not Recovered/Not Resolved]
